FAERS Safety Report 6104327-7 (Version None)
Quarter: 2009Q1

REPORT INFORMATION
  Report Type: 
  Country: None (occurrence: None)
  Receive Date: 20090305
  Receipt Date: 20090220
  Transmission Date: 20090719
  Serious: Yes (Death, Hospitalization)
  Sender: FDA-Public Use
  Company Number: JP-AVENTIS-200910028JP

PATIENT
  Age: 79 Year
  Sex: Male
  Weight: 61.4 kg

DRUGS (13)
  1. TAXOTERE [Suspect]
     Route: 041
     Dates: start: 20081210, end: 20081210
  2. PREDNISOLONE [Concomitant]
     Route: 048
     Dates: start: 20081210, end: 20081223
  3. PREDNISOLONE [Concomitant]
     Route: 048
     Dates: start: 20081224, end: 20081227
  4. PREDNISOLONE [Concomitant]
     Route: 048
     Dates: start: 20081228, end: 20081230
  5. WARFARIN SODIUM [Concomitant]
     Indication: MYOCARDIAL INFARCTION
     Route: 048
     Dates: end: 20081221
  6. LIPITOR [Concomitant]
     Route: 048
     Dates: end: 20081221
  7. GLIMICRON [Concomitant]
     Indication: DIABETES MELLITUS
     Route: 048
     Dates: end: 20081221
  8. PURSENNID                          /00571901/ [Concomitant]
  9. OMEPRAL [Concomitant]
  10. ESTRACYT                           /00327002/ [Concomitant]
     Dates: start: 20061024, end: 20081207
  11. ZOMETA [Concomitant]
     Dates: start: 20070801, end: 20081217
  12. FRANDOL [Concomitant]
     Indication: MYOCARDIAL INFARCTION
  13. NORVASC [Concomitant]
     Indication: HYPERTENSION

REACTIONS (4)
  - DISSEMINATED INTRAVASCULAR COAGULATION [None]
  - NEUTROPENIA [None]
  - RENAL FAILURE ACUTE [None]
  - SEPSIS [None]
